FAERS Safety Report 17756243 (Version 1)
Quarter: 2020Q2

REPORT INFORMATION
  Report Type: Report from Study
  Country: US (occurrence: US)
  Receive Date: 20200507
  Receipt Date: 20200507
  Transmission Date: 20200714
  Serious: Yes (Hospitalization, Other)
  Sender: FDA-Public Use
  Company Number: US-TAKEDA-2018TUS008589

PATIENT
  Age: 75 Year
  Sex: Female

DRUGS (7)
  1. PONATINIB [Suspect]
     Active Substance: PONATINIB
     Indication: CHRONIC MYELOID LEUKAEMIA
     Dosage: 15 MILLIGRAM, QD
     Route: 048
     Dates: start: 2017
  2. SOTALOL. [Concomitant]
     Active Substance: SOTALOL
     Indication: ATRIAL FIBRILLATION
     Dosage: UNK
     Route: 065
  3. LANTUS [Concomitant]
     Active Substance: INSULIN GLARGINE
     Dosage: UNK
  4. AMLODIPINE [Concomitant]
     Active Substance: AMLODIPINE BESYLATE
     Dosage: UNK
  5. PRANDIN                            /00882701/ [Concomitant]
     Active Substance: DEFLAZACORT
     Dosage: UNK
  6. LOSARTAN. [Concomitant]
     Active Substance: LOSARTAN
     Dosage: UNK
  7. PONATINIB [Suspect]
     Active Substance: PONATINIB
     Dosage: 15 MILLIGRAM, QD
     Route: 048
     Dates: start: 201904, end: 202001

REACTIONS (29)
  - Volvulus [Unknown]
  - Feeding disorder [Recovered/Resolved]
  - Vitamin D decreased [Unknown]
  - Protein urine present [Unknown]
  - Speech disorder [Unknown]
  - Weight decreased [Recovered/Resolved]
  - Rash [Unknown]
  - Atrial fibrillation [Unknown]
  - Gastric ulcer [Not Recovered/Not Resolved]
  - Pleural effusion [Unknown]
  - Nausea [Recovered/Resolved]
  - Alopecia [Unknown]
  - Unevaluable event [Unknown]
  - Rhinovirus infection [Not Recovered/Not Resolved]
  - Hypersensitivity [Unknown]
  - Influenza [Unknown]
  - Blood glucose increased [Unknown]
  - Nasopharyngitis [Recovered/Resolved]
  - Bronchitis [Recovering/Resolving]
  - Fatigue [Unknown]
  - Pneumonia [Recovered/Resolved]
  - Thyroid disorder [Recovered/Resolved]
  - Abdominal distension [Not Recovered/Not Resolved]
  - Cerebrovascular accident [Recovering/Resolving]
  - Gastric disorder [Recovered/Resolved]
  - Movement disorder [Unknown]
  - Sinusitis [Unknown]
  - Dry mouth [Unknown]
  - Constipation [Unknown]

NARRATIVE: CASE EVENT DATE: 201803
